FAERS Safety Report 15035467 (Version 1)
Quarter: 2018Q2

REPORT INFORMATION
  Report Type: Spontaneous
  Country: US (occurrence: US)
  Receive Date: 20180620
  Receipt Date: 20180620
  Transmission Date: 20180711
  Serious: Yes (Hospitalization)
  Sender: FDA-Public Use
  Company Number: US-BAYER-2018-071811

PATIENT
  Age: 91 Year
  Sex: Male

DRUGS (3)
  1. XARELTO [Suspect]
     Active Substance: RIVAROXABAN
     Indication: CEREBROVASCULAR ACCIDENT PROPHYLAXIS
     Dosage: UNK
     Route: 048
     Dates: start: 20160229, end: 20160911
  2. ACETYLSALICYLIC ACID({=100 MG) [Suspect]
     Active Substance: ASPIRIN
     Indication: PRODUCT USED FOR UNKNOWN INDICATION
     Dosage: UNK
     Route: 048
  3. XARELTO [Suspect]
     Active Substance: RIVAROXABAN
     Indication: ATRIAL FIBRILLATION
     Dosage: UNK
     Route: 048
     Dates: start: 20160912, end: 20160916

REACTIONS (7)
  - Calculus prostatic [Unknown]
  - Haematuria [Unknown]
  - Prostatomegaly [Unknown]
  - Gastrointestinal haemorrhage [Unknown]
  - Calculus bladder [Unknown]
  - Angiopathy [Unknown]
  - Coagulopathy [Unknown]

NARRATIVE: CASE EVENT DATE: 201609
